FAERS Safety Report 4318190-8 (Version None)
Quarter: 2004Q1

REPORT INFORMATION
  Report Type: 
  Country: None (occurrence: None)
  Receive Date: 20040315
  Receipt Date: 20040302
  Transmission Date: 20041129
  Serious: No
  Sender: FDA-Public Use
  Company Number: 2004UW04146

PATIENT

DRUGS (1)
  1. IRESSA [Suspect]

REACTIONS (1)
  - COLITIS ISCHAEMIC [None]
